FAERS Safety Report 19243082 (Version 1)
Quarter: 2021Q2

REPORT INFORMATION
  Report Type: Spontaneous
  Country: FI (occurrence: FI)
  Receive Date: 20210511
  Receipt Date: 20210511
  Transmission Date: 20210717
  Serious: Yes (Disabling, Other)
  Sender: FDA-Public Use
  Company Number: FI-SA-2021SA154897

PATIENT
  Age: 22 Year
  Sex: Male

DRUGS (6)
  1. ETHAMBUTOL [Suspect]
     Active Substance: ETHAMBUTOL HYDROCHLORIDE
     Indication: PULMONARY TUBERCULOSIS
     Dates: start: 1970, end: 1974
  2. NICOVIT [ISONIAZID;PYRIDOXINE HYDROCHLORIDE] [Suspect]
     Active Substance: ISONIAZID\PYRIDOXINE HYDROCHLORIDE
     Indication: RENAL TUBERCULOSIS
  3. RIFAMPICIN [Suspect]
     Active Substance: RIFAMPIN
     Indication: PULMONARY TUBERCULOSIS
     Dates: start: 1970, end: 1974
  4. NICOVIT [ISONIAZID;PYRIDOXINE HYDROCHLORIDE] [Suspect]
     Active Substance: ISONIAZID\PYRIDOXINE HYDROCHLORIDE
     Indication: PULMONARY TUBERCULOSIS
     Dates: start: 1970, end: 1974
  5. RIFAMPICIN [Suspect]
     Active Substance: RIFAMPIN
     Indication: RENAL TUBERCULOSIS
  6. ETHAMBUTOL [Suspect]
     Active Substance: ETHAMBUTOL HYDROCHLORIDE
     Indication: RENAL TUBERCULOSIS

REACTIONS (4)
  - Balance disorder [Recovered/Resolved with Sequelae]
  - Polyneuropathy [Recovered/Resolved with Sequelae]
  - Abdominal discomfort [Recovered/Resolved with Sequelae]
  - Dizziness [Recovered/Resolved with Sequelae]

NARRATIVE: CASE EVENT DATE: 1970
